FAERS Safety Report 15577624 (Version 1)
Quarter: 2018Q4

REPORT INFORMATION
  Report Type: Spontaneous
  Country: IT (occurrence: IT)
  Receive Date: 20181102
  Receipt Date: 20181102
  Transmission Date: 20190205
  Serious: Yes (Disabling)
  Sender: FDA-Public Use
  Company Number: IT-TEVA-2018-IT-971871

PATIENT
  Age: 76 Year
  Sex: Female

DRUGS (1)
  1. ALENDRONIC ACID [Suspect]
     Active Substance: ALENDRONIC ACID
     Route: 048
     Dates: start: 20060101, end: 20160101

REACTIONS (2)
  - Purulent discharge [Unknown]
  - Fistula [Unknown]

NARRATIVE: CASE EVENT DATE: 20160101
